FAERS Safety Report 9413587 (Version 1)
Quarter: 2013Q3

REPORT INFORMATION
  Report Type: Spontaneous
  Country: CA (occurrence: CA)
  Receive Date: 20130722
  Receipt Date: 20130722
  Transmission Date: 20140515
  Serious: Yes (Hospitalization)
  Sender: FDA-Public Use
  Company Number: CA-GILEAD-2013-0075787

PATIENT
  Sex: Female

DRUGS (6)
  1. AMBRISENTAN [Suspect]
     Indication: PULMONARY ARTERIAL HYPERTENSION
     Dosage: 5 MG, QD
     Route: 048
     Dates: start: 20091231
  2. ADCIRCA [Suspect]
     Indication: PULMONARY ARTERIAL HYPERTENSION
     Dosage: 20MG TWICE PER DAY
     Route: 065
     Dates: start: 20130516, end: 20130607
  3. SPIRIVA [Concomitant]
  4. AMIODARONE [Concomitant]
  5. WARFARIN [Concomitant]
  6. OXYGEN [Concomitant]

REACTIONS (5)
  - Heart rate increased [Unknown]
  - Heart rate irregular [Unknown]
  - Dyspnoea [Unknown]
  - Oedema peripheral [Unknown]
  - Local swelling [Unknown]
